FAERS Safety Report 5091573-7 (Version None)
Quarter: 2006Q3

REPORT INFORMATION
  Report Type: 
  Country: None (occurrence: None)
  Receive Date: 20060829
  Receipt Date: 20060818
  Transmission Date: 20061208
  Serious: Yes (Hospitalization)
  Sender: FDA-Public Use
  Company Number: CH-JNJFOC-20060804303

PATIENT
  Age: 33 Year
  Sex: Male

DRUGS (2)
  1. TOPAMAX [Suspect]
     Indication: EPILEPSY
     Route: 048
  2. RIVOTRIL [Concomitant]
     Indication: EPILEPSY
     Route: 048

REACTIONS (2)
  - HEPATIC ENZYME INCREASED [None]
  - JAUNDICE [None]
